FAERS Safety Report 4357760-8 (Version None)
Quarter: 2004Q2

REPORT INFORMATION
  Report Type: 
  Country: None (occurrence: None)
  Receive Date: 20040510
  Receipt Date: 20040501
  Transmission Date: 20050107
  Serious: Yes (Death, Life-Threatening, Hospitalization, Disabling)
  Sender: FDA-Public Use
  Company Number: 2004-05-0021

PATIENT
  Age: 59 Year
  Sex: Female
  Weight: 61 kg

DRUGS (4)
  1. PEG-INTRON [Suspect]
     Indication: HEPATITIS C
     Dosage: 100-80* MCG SUBCUTANEOUS (SEE IMAGE)
     Route: 058
     Dates: start: 20031213, end: 20040420
  2. PEG-INTRON [Suspect]
     Indication: HEPATITIS C
     Dosage: 100-80* MCG SUBCUTANEOUS (SEE IMAGE)
     Route: 058
     Dates: end: 20040420
  3. PEG-INTRON [Suspect]
     Indication: HEPATITIS C
     Dosage: 100-80* MCG SUBCUTANEOUS (SEE IMAGE)
     Route: 058
     Dates: start: 20031213
  4. RIBAVIRIN [Suspect]
     Indication: HEPATITIS C
     Dosage: 800 MG QD ORAL
     Route: 048
     Dates: start: 20031213, end: 20040422

REACTIONS (8)
  - COUGH [None]
  - DISSEMINATED INTRAVASCULAR COAGULATION [None]
  - GENERAL PHYSICAL HEALTH DETERIORATION [None]
  - PLATELET COUNT DECREASED [None]
  - PYREXIA [None]
  - RENAL FAILURE [None]
  - SEPSIS [None]
  - WHITE BLOOD CELL COUNT DECREASED [None]
